FAERS Safety Report 8412098 (Version 2)
Quarter: 2019Q3

REPORT INFORMATION
  Report Type: Report from Study
  Country: MX (occurrence: MX)
  Receive Date: 20120217
  Receipt Date: 20190714
  Transmission Date: 20191005
  Serious: Yes (Disabling)
  Sender: FDA-Public Use
  Company Number: MX-UCBSA-051514

PATIENT
  Age: 40 Year
  Sex: Male
  Weight: 84.5 kg

DRUGS (3)
  1. ZALDIAR [Concomitant]
     Active Substance: ACETAMINOPHEN\TRAMADOL HYDROCHLORIDE
     Indication: AXIAL SPONDYLOARTHRITIS
     Dosage: 3 MG DAILY
     Route: 048
     Dates: start: 200201
  2. INDOMETACINA [Concomitant]
     Active Substance: INDOMETHACIN
     Indication: AXIAL SPONDYLOARTHRITIS
     Dosage: 25 MG DAILY
     Route: 048
     Dates: start: 200201
  3. CERTOLIZUMAB PEGOL VS PLACEBO [Suspect]
     Active Substance: CERTOLIZUMAB PEGOL
     Indication: AXIAL SPONDYLOARTHRITIS
     Dosage: CZP 200
     Route: 058
     Dates: end: 20110615

REACTIONS (1)
  - Retinal vein occlusion [Recovered/Resolved]

NARRATIVE: CASE EVENT DATE: 20110615
